FAERS Safety Report 8261683-1 (Version None)
Quarter: 2012Q2

REPORT INFORMATION
  Report Type: 
  Country: None (occurrence: None)
  Receive Date: 20120405
  Receipt Date: 20120405
  Transmission Date: 20120825
  Serious: Yes (Other)
  Sender: FDA-Public Use
  Company Number: None

PATIENT
  Age: 24 Year
  Sex: Female
  Weight: 72.574 kg

DRUGS (1)
  1. LO LOESTRIN FE [Suspect]
     Indication: OVARIAN CYST
     Dosage: 26
     Route: 048
     Dates: start: 20120228, end: 20120404

REACTIONS (2)
  - HAEMORRHAGE [None]
  - PANIC ATTACK [None]
